FAERS Safety Report 21122644 (Version 1)
Quarter: 2022Q3

REPORT INFORMATION
  Report Type: Report from Study
  Country: GB (occurrence: GB)
  Receive Date: 20220723
  Receipt Date: 20220723
  Transmission Date: 20221027
  Serious: Yes (Other)
  Sender: FDA-Public Use
  Company Number: GB-NOVARTISPH-NVSC2022GB164037

PATIENT
  Sex: Female

DRUGS (1)
  1. HYRIMOZ [Suspect]
     Active Substance: ADALIMUMAB-ADAZ
     Indication: Rheumatoid arthritis
     Dosage: 40 MG, Q2W
     Route: 058

REACTIONS (3)
  - Depression suicidal [Recovered/Resolved]
  - Fatigue [Not Recovered/Not Resolved]
  - Lethargy [Not Recovered/Not Resolved]
